FAERS Safety Report 9357331 (Version 3)
Quarter: 2013Q3

REPORT INFORMATION
  Report Type: Spontaneous
  Country: US (occurrence: None)
  Receive Date: 20130617
  Receipt Date: 20130709
  Transmission Date: 20140515
  Serious: Yes (Hospitalization, Other)
  Sender: FDA-Public Use
  Company Number: 2013-2412

PATIENT
  Age: 41 Year
  Sex: Male
  Weight: 74 kg

DRUGS (7)
  1. SOMATULINE DEPOT [Suspect]
     Indication: ACROMEGALY
     Dosage: 90MG (90MG, 1 IN 28D) SUBCUTANEOUS
     Route: 058
     Dates: start: 20130531
  2. VITAMIN C [Concomitant]
  3. VITAMIN D (ERGOCALCIFEROL) [Concomitant]
  4. FISH OIL (FISH OIL) [Concomitant]
  5. FLAX OIL (LINUM USITATISSIMUM SEED OIL) [Concomitant]
  6. B COMPLEX VITAMIN (NICOTINAM W/PYRIDOXI. HCL/RIBOFL./THIAM. HCL) [Concomitant]
  7. OCTREOTIDE (OCTREOTIDE) [Concomitant]

REACTIONS (7)
  - Biliary colic [None]
  - Cholelithiasis [None]
  - Pancreatitis [None]
  - Constipation [None]
  - Abdominal distension [None]
  - Faeces discoloured [None]
  - Fall [None]
